FAERS Safety Report 11752700 (Version 1)
Quarter: 2015Q4

REPORT INFORMATION
  Report Type: Report from Study
  Country: US (occurrence: US)
  Receive Date: 20151119
  Receipt Date: 20151119
  Transmission Date: 20160304
  Serious: Yes (Death, Hospitalization)
  Sender: FDA-Public Use
  Company Number: US-ROCHE-1658925

PATIENT
  Age: 89 Year
  Sex: Male

DRUGS (19)
  1. KEFLEX [Concomitant]
     Active Substance: CEPHALEXIN
     Route: 048
  2. ALTACE [Concomitant]
     Active Substance: RAMIPRIL
     Route: 048
  3. ASPIRIN. [Concomitant]
     Active Substance: ASPIRIN
     Route: 048
  4. FEXOFENADINE [Concomitant]
     Active Substance: FEXOFENADINE\FEXOFENADINE HYDROCHLORIDE
     Route: 048
  5. POTASSIUM ACETATE. [Concomitant]
     Active Substance: POTASSIUM ACETATE
  6. MELATONIN [Concomitant]
     Active Substance: MELATONIN
     Route: 048
  7. CARVEDILOL. [Concomitant]
     Active Substance: CARVEDILOL
     Route: 065
  8. ERIVEDGE [Suspect]
     Active Substance: VISMODEGIB
     Indication: BASAL CELL CARCINOMA
     Route: 048
     Dates: start: 20140514, end: 20151101
  9. ZYRTEC [Concomitant]
     Active Substance: CETIRIZINE HYDROCHLORIDE
     Route: 048
  10. FISH OIL [Concomitant]
     Active Substance: FISH OIL
     Route: 048
  11. GABAPENTIN. [Concomitant]
     Active Substance: GABAPENTIN
  12. IMODIUM [Concomitant]
     Active Substance: LOPERAMIDE HYDROCHLORIDE
     Indication: DIARRHOEA
  13. OMEPRAZOLE. [Concomitant]
     Active Substance: OMEPRAZOLE
  14. FUROSEMIDE. [Concomitant]
     Active Substance: FUROSEMIDE
  15. TRAMADOL. [Concomitant]
     Active Substance: TRAMADOL
     Route: 048
  16. ISOSORBIDE MONONITRATE. [Concomitant]
     Active Substance: ISOSORBIDE MONONITRATE
  17. PRAVASTATIN [Concomitant]
     Active Substance: PRAVASTATIN\PRAVASTATIN SODIUM
     Route: 048
  18. NITROSTAT [Concomitant]
     Active Substance: NITROGLYCERIN
     Route: 060
  19. NEURONTIN [Concomitant]
     Active Substance: GABAPENTIN

REACTIONS (8)
  - Cardiac disorder [Fatal]
  - Basal cell carcinoma [Unknown]
  - Alopecia [Unknown]
  - Muscle spasms [Unknown]
  - Drug dose omission [Unknown]
  - Frequent bowel movements [Unknown]
  - Coma [Fatal]
  - Diarrhoea [Unknown]

NARRATIVE: CASE EVENT DATE: 20151101
